FAERS Safety Report 7539222-X (Version None)
Quarter: 2011Q2

REPORT INFORMATION
  Report Type: 
  Country: None (occurrence: None)
  Receive Date: 20110524
  Receipt Date: 20110411
  Transmission Date: 20111010
  Serious: No
  Sender: FDA-Public Use
  Company Number: 031011

PATIENT
  Sex: Male
  Weight: 63 kg

DRUGS (3)
  1. PREDNISONE [Concomitant]
  2. SULFASALAZINE [Concomitant]
  3. CIMZIA [Suspect]
     Indication: CROHN'S DISEASE
     Dosage: (2 INJECTIONS SUBCUTANEOUS)
     Route: 058
     Dates: start: 20110201

REACTIONS (1)
  - ABDOMINAL PAIN UPPER [None]
